FAERS Safety Report 19099568 (Version 2)
Quarter: 2021Q2

REPORT INFORMATION
  Report Type: Report from Study
  Country: None (occurrence: US)
  Receive Date: 20210407
  Receipt Date: 20210414
  Transmission Date: 20210717
  Serious: Yes (Other)
  Sender: FDA-Public Use
  Company Number: US-ABBVIE-21K-163-3843443-00

PATIENT
  Age: 44 Year
  Sex: Female

DRUGS (2)
  1. HUMIRA [Suspect]
     Active Substance: ADALIMUMAB
     Indication: RHEUMATOID ARTHRITIS
     Dosage: CITRATE FREE
     Route: 058
     Dates: start: 20200919, end: 20201114
  2. HUMIRA [Suspect]
     Active Substance: ADALIMUMAB
     Dosage: CITRATE FREE
     Route: 058
     Dates: start: 20210206

REACTIONS (7)
  - Bacterial infection [Recovered/Resolved]
  - Acne [Unknown]
  - Joint injury [Unknown]
  - Weight decreased [Unknown]
  - General physical health deterioration [Unknown]
  - Weight increased [Unknown]
  - Acne [Recovered/Resolved]

NARRATIVE: CASE EVENT DATE: 2020
